FAERS Safety Report 24459816 (Version 1)
Quarter: 2024Q4

REPORT INFORMATION
  Report Type: Spontaneous
  Country: CN (occurrence: CN)
  Receive Date: 20241018
  Receipt Date: 20241018
  Transmission Date: 20250114
  Serious: No
  Sender: ROCHE
  Company Number: CN-ROCHE-3533548

PATIENT
  Age: 10 Year
  Sex: Male

DRUGS (20)
  1. RITUXIMAB [Suspect]
     Active Substance: RITUXIMAB
     Indication: Post transplant lymphoproliferative disorder
     Dosage: ON DAY 0
     Route: 042
  2. VINCRISTINE [Suspect]
     Active Substance: VINCRISTINE
     Indication: Post transplant lymphoproliferative disorder
     Dosage: FREQUENCY TEXT:ON DAY 1
     Route: 065
  3. DEXAMETHASONE [Suspect]
     Active Substance: DEXAMETHASONE
     Indication: Post transplant lymphoproliferative disorder
     Dosage: FREQUENCY TEXT:DAY 1-5
     Route: 065
  4. BUSULFAN [Concomitant]
     Active Substance: BUSULFAN
     Dosage: DAY -9 TO DAY -7
  5. FLUDARABINE [Concomitant]
     Active Substance: FLUDARABINE PHOSPHATE
     Dosage: 30 MG/M2/DAY FROM DAY -6 TO DAY -2
  6. THYMOCYTE IMMUNE GLOBULIN NOS [Concomitant]
     Active Substance: THYMOCYTE IMMUNE GLOBULIN NOS
     Dosage: DAY -5 TO DAY -2
  7. CYCLOSPORINE [Concomitant]
     Active Substance: CYCLOSPORINE
     Dosage: FROM DAY -9
  8. TACROLIMUS [Concomitant]
     Active Substance: TACROLIMUS
     Indication: Graft versus host disease
  9. MYCOPHENOLATE SODIUM [Concomitant]
     Active Substance: MYCOPHENOLATE SODIUM
     Indication: Graft versus host disease
     Dosage: DAY -2 TO DAY +28
  10. METHOTREXATE [Concomitant]
     Active Substance: METHOTREXATE
     Indication: Graft versus host disease
     Dosage: FREQUENCY TEXT:ON DAY 1
  11. METHOTREXATE [Concomitant]
     Active Substance: METHOTREXATE
     Dosage: ON DAYS +3, +6, AND +11
  12. TOCILIZUMAB [Concomitant]
     Active Substance: TOCILIZUMAB
  13. METHYLPREDNISOLONE [Concomitant]
     Active Substance: METHYLPREDNISOLONE
  14. RUXOLITINIB [Concomitant]
     Active Substance: RUXOLITINIB
  15. BASILIXIMAB [Concomitant]
     Active Substance: BASILIXIMAB
  16. FOSCARNET SODIUM [Concomitant]
     Active Substance: FOSCARNET SODIUM
     Route: 042
  17. MANNITOL [Concomitant]
     Active Substance: MANNITOL
  18. IDARUBICIN [Concomitant]
     Active Substance: IDARUBICIN
  19. VINDESINE [Concomitant]
     Active Substance: VINDESINE
  20. ASPARAGINASE [Concomitant]
     Active Substance: ASPARAGINASE

REACTIONS (1)
  - Cytomegalovirus chorioretinitis [Recovering/Resolving]
